FAERS Safety Report 5081671-6 (Version None)
Quarter: 2006Q3

REPORT INFORMATION
  Report Type: 
  Country: None (occurrence: None)
  Receive Date: 20060816
  Receipt Date: 20060125
  Transmission Date: 20061208
  Serious: Yes (Hospitalization)
  Sender: FDA-Public Use
  Company Number: US-ROCHE-433884

PATIENT
  Age: 15 Year
  Sex: Male
  Weight: 81.6 kg

DRUGS (4)
  1. ACCUTANE [Suspect]
     Route: 048
     Dates: start: 19920606, end: 19921212
  2. ACCUTANE [Suspect]
     Dosage: ONE 40 MG ACCUTANE CAPSULE WAS TAKEN ON ODD NUMBERED DAYS AND TWO ON EVEN NUMBERED DAYS.
     Route: 048
     Dates: start: 19920808, end: 19920924
  3. ACCUTANE [Suspect]
     Route: 048
     Dates: start: 19920925, end: 19930306
  4. CLINDAMYCIN [Concomitant]
     Dates: start: 19921114

REACTIONS (44)
  - ACNE [None]
  - ALOPECIA [None]
  - ANAEMIA [None]
  - ANXIETY [None]
  - ARTHRALGIA [None]
  - ASTHENIA [None]
  - COLITIS [None]
  - COLITIS ULCERATIVE [None]
  - DEPRESSION [None]
  - DIZZINESS [None]
  - DRY SKIN [None]
  - DYSPNOEA [None]
  - DYSPNOEA EXERTIONAL [None]
  - ENTEROCOLONIC FISTULA [None]
  - FATIGUE [None]
  - GASTROOESOPHAGEAL REFLUX DISEASE [None]
  - HAEMORRHOIDS [None]
  - HEADACHE [None]
  - HYPOVOLAEMIA [None]
  - ILEUS [None]
  - INCISION SITE COMPLICATION [None]
  - INFLAMMATORY BOWEL DISEASE [None]
  - INJURY [None]
  - INSOMNIA [None]
  - INTESTINAL OBSTRUCTION [None]
  - IRON DEFICIENCY ANAEMIA [None]
  - IRRITABLE BOWEL SYNDROME [None]
  - MALAISE [None]
  - MALNUTRITION [None]
  - MUSCLE ATROPHY [None]
  - MYALGIA [None]
  - NAUSEA [None]
  - NIGHT SWEATS [None]
  - PLATELET COUNT INCREASED [None]
  - POLYARTHRITIS [None]
  - POSTOPERATIVE WOUND INFECTION [None]
  - PURULENT DISCHARGE [None]
  - RHEUMATOID ARTHRITIS [None]
  - SUICIDAL IDEATION [None]
  - SUICIDE ATTEMPT [None]
  - SYNCOPE VASOVAGAL [None]
  - TREATMENT NONCOMPLIANCE [None]
  - VOMITING [None]
  - WEIGHT DECREASED [None]
